FAERS Safety Report 5690298-4 (Version None)
Quarter: 2008Q1

REPORT INFORMATION
  Report Type: 
  Country: None (occurrence: None)
  Receive Date: 20080331
  Receipt Date: 20080331
  Transmission Date: 20080703
  Serious: Yes (Life-Threatening)
  Sender: FDA-Public Use
  Company Number: None

PATIENT
  Age: 70 Year
  Sex: Male
  Weight: 117.9352 kg

DRUGS (1)
  1. SINGULAIR [Suspect]
     Indication: RESPIRATORY DISORDER
     Dosage: 1 PILL ONCE A DAY PO MONTHS
     Route: 048
     Dates: start: 20080115, end: 20080330

REACTIONS (1)
  - DEPRESSION [None]
